FAERS Safety Report 6233377-5 (Version None)
Quarter: 2009Q2

REPORT INFORMATION
  Report Type: 
  Country: None (occurrence: None)
  Receive Date: 20090617
  Receipt Date: 20090615
  Transmission Date: 20091009
  Serious: Yes (Hospitalization)
  Sender: FDA-Public Use
  Company Number: DE-BRISTOL-MYERS SQUIBB COMPANY-14617351

PATIENT
  Age: 67 Year
  Sex: Male
  Weight: 64 kg

DRUGS (11)
  1. CETUXIMAB [Suspect]
     Indication: NON-SMALL CELL LUNG CANCER
     Dosage: STRENGTH-2MG/ML 700MG(3MAR09-9APR09) INTERRUPTED=16APR09 RESTARTED=30APR09(700MG) DURATION=36D
     Route: 042
     Dates: start: 20090303, end: 20090409
  2. CARBOPLATIN [Suspect]
     Indication: NON-SMALL CELL LUNG CANCER
     Dosage: 743MG(03MAR09-02APR09) INTERRUPTED ON 16APR09 RESTARTED ON 30APR09 DAILY DOSE-AUC5(743MG)
     Route: 042
     Dates: start: 20090303, end: 20090402
  3. GEMCITABINE [Suspect]
     Indication: NON-SMALL CELL LUNG CANCER
     Dosage: 1200MG/M2(3MAR09-9APR09) INTERRUPTED 16APR09 RESTARTED 30APR09(2100MG) THERAPY DURATION36D
     Route: 042
     Dates: start: 20090303, end: 20090409
  4. VALORON N [Concomitant]
     Dosage: 1 DF = 50(UNIT NOT SPECIFIED)
  5. PANTOZOL [Concomitant]
     Dosage: 1 DF = 20(UNIT NOT SPECIFIED)
  6. LISIHEXAL [Concomitant]
     Dosage: 1 DF = 10(UNIT NOT SPECIFIED).FORMULATION - LISIHEXAL COMP.
  7. RINGER'S [Concomitant]
  8. SPIRIVA [Concomitant]
     Dosage: 1 DF = 18(UNIT NOT SPECIFIED)
  9. FORADIL [Concomitant]
  10. NULYTELY [Concomitant]
  11. HEPARIN [Concomitant]
     Dosage: 1 DF = 2X5000 IE.
     Route: 058

REACTIONS (6)
  - ANAEMIA [None]
  - DEHYDRATION [None]
  - FATIGUE [None]
  - MONOPARESIS [None]
  - SYNCOPE [None]
  - THROMBOCYTOPENIA [None]
